FAERS Safety Report 4668250-7 (Version None)
Quarter: 2005Q2

REPORT INFORMATION
  Report Type: 
  Country: None (occurrence: None)
  Receive Date: 20050523
  Receipt Date: 20050224
  Transmission Date: 20051028
  Serious: Yes (Other)
  Sender: FDA-Public Use
  Company Number: PHEH2005US02472

PATIENT
  Sex: Male
  Weight: 56 kg

DRUGS (9)
  1. PAMIDRONATE DISODIUM [Suspect]
     Indication: PROSTATE CANCER METASTATIC
     Dosage: 90 MG, Q 4 WEEKS
     Route: 042
     Dates: end: 20040227
  2. ZOMETA [Suspect]
     Indication: PROSTATE CANCER METASTATIC
     Dosage: 4 MG, Q 4 WEEKS
     Route: 042
     Dates: start: 20040315, end: 20040729
  3. CASODEX [Concomitant]
     Dates: start: 19990801, end: 20010801
  4. ZOLADEX [Concomitant]
  5. MEGACE [Concomitant]
     Dates: start: 20010801, end: 20020601
  6. TAXOTERE [Concomitant]
     Dates: start: 20020601, end: 20040401
  7. EMCYT [Concomitant]
     Dates: start: 20020601, end: 20040401
  8. KETOCONAZOLE [Concomitant]
  9. HYDROCORTISONE [Concomitant]

REACTIONS (8)
  - BONE DISORDER [None]
  - BONE INFECTION [None]
  - DENTAL PROSTHESIS PLACEMENT [None]
  - EATING DISORDER [None]
  - OSTEONECROSIS [None]
  - TOOTH EXTRACTION [None]
  - TOOTH INFECTION [None]
  - WEIGHT DECREASED [None]
